FAERS Safety Report 21632584 (Version 1)
Quarter: 2022Q4

REPORT INFORMATION
  Report Type: Spontaneous
  Country: CA (occurrence: CA)
  Receive Date: 20221123
  Receipt Date: 20221123
  Transmission Date: 20230113
  Serious: Yes (Other)
  Sender: FDA-Public Use
  Company Number: CA-AMGEN-CANSP2022198562

PATIENT
  Age: 81 Year
  Sex: Female

DRUGS (2)
  1. PROLIA [Suspect]
     Active Substance: DENOSUMAB
     Indication: Bone density abnormal
     Dosage: UNK
     Route: 065
     Dates: start: 2016
  2. PROLIA [Suspect]
     Active Substance: DENOSUMAB
     Dosage: 30 MILLIGRAM/ML
     Route: 065

REACTIONS (5)
  - Arthropathy [Unknown]
  - Jaw clicking [Unknown]
  - Gingival recession [Unknown]
  - Adverse reaction [Unknown]
  - Back pain [Unknown]

NARRATIVE: CASE EVENT DATE: 20160101
